FAERS Safety Report 5050521-6 (Version None)
Quarter: 2006Q3

REPORT INFORMATION
  Report Type: 
  Country: None (occurrence: None)
  Receive Date: 20060707
  Receipt Date: 20060627
  Transmission Date: 20061208
  Serious: Yes (Hospitalization)
  Sender: FDA-Public Use
  Company Number: 430002E06DEU

PATIENT
  Age: 75 Year
  Sex: Male

DRUGS (5)
  1. NOVANTRONE [Suspect]
     Indication: ACUTE MYELOID LEUKAEMIA
     Dosage: 14 MG, 1 IN 1 DAYS
     Dates: start: 20040811, end: 20040815
  2. CYTARABINE [Suspect]
     Indication: ACUTE MYELOID LEUKAEMIA
     Dosage: 194 MG, 1 IN 1 DAYS
     Dates: start: 20040811, end: 20040817
  3. ETOPOSIDE [Suspect]
     Indication: ACUTE MYELOID LEUKAEMIA
     Dosage: 194 MG, 1 IN 1 DAYS
     Dates: start: 20040811, end: 20040813
  4. VANCOMYCIN [Concomitant]
  5. MEROPENEM [Concomitant]

REACTIONS (2)
  - APLASIA [None]
  - BRONCHOPULMONARY ASPERGILLOSIS [None]
